FAERS Safety Report 15946796 (Version 1)
Quarter: 2019Q1

REPORT INFORMATION
  Report Type: Report from Study
  Country: CL (occurrence: CL)
  Receive Date: 20190212
  Receipt Date: 20190212
  Transmission Date: 20190417
  Serious: Yes (Other)
  Sender: FDA-Public Use
  Company Number: CL-BRISTOL-MYERS SQUIBB COMPANY-BMS-2019-011397

PATIENT
  Age: 66 Year
  Sex: Female

DRUGS (1)
  1. ABATACEPT [Suspect]
     Active Substance: ABATACEPT
     Indication: RHEUMATOID ARTHRITIS
     Route: 058

REACTIONS (1)
  - Hypertensive crisis [Not Recovered/Not Resolved]

NARRATIVE: CASE EVENT DATE: 20190116
